FAERS Safety Report 14475847 (Version 2)
Quarter: 2018Q1

REPORT INFORMATION
  Report Type: Report from Study
  Country: US (occurrence: US)
  Receive Date: 20180201
  Receipt Date: 20180310
  Transmission Date: 20180509
  Serious: Yes (Other)
  Sender: FDA-Public Use
  Company Number: PHEH2018US003422

PATIENT
  Age: 47 Year
  Sex: Female
  Weight: 90.7 kg

DRUGS (1)
  1. GILENYA [Suspect]
     Active Substance: FINGOLIMOD HYDROCHLORIDE
     Indication: RELAPSING-REMITTING MULTIPLE SCLEROSIS
     Dosage: 0.5 MG, QD
     Route: 048
     Dates: start: 20180123

REACTIONS (2)
  - Electrocardiogram QT prolonged [Recovered/Resolved]
  - Atrioventricular block [Recovered/Resolved]

NARRATIVE: CASE EVENT DATE: 20180123
